FAERS Safety Report 10467214 (Version 1)
Quarter: 2014Q3

REPORT INFORMATION
  Report Type: Spontaneous
  Country: JP (occurrence: JP)
  Receive Date: 20140922
  Receipt Date: 20140922
  Transmission Date: 20150326
  Serious: Yes (Other)
  Sender: FDA-Public Use
  Company Number: PHHY2010JP097016

PATIENT
  Age: 63 Year

DRUGS (1)
  1. GLIVEC [Suspect]
     Active Substance: IMATINIB MESYLATE
     Indication: LYMPHOCYTIC LEUKAEMIA
     Dosage: 600 MG, UNK

REACTIONS (7)
  - Cytomegalovirus infection [Unknown]
  - Oedema [Unknown]
  - Neutropenia [Unknown]
  - Colitis [Unknown]
  - Thrombocytopenia [Unknown]
  - Anaemia [Unknown]
  - Pleural effusion [Unknown]
